FAERS Safety Report 6291734-5 (Version None)
Quarter: 2009Q3

REPORT INFORMATION
  Report Type: 
  Country: None (occurrence: None)
  Receive Date: 20090730
  Receipt Date: 20090727
  Transmission Date: 20100115
  Serious: Yes (Death)
  Sender: FDA-Public Use
  Company Number: PHHY2009IT31143

PATIENT

DRUGS (3)
  1. GLEEVEC [Suspect]
     Indication: CHRONIC GRAFT VERSUS HOST DISEASE
     Dosage: 100 MG/DAY
  2. GLEEVEC [Suspect]
     Dosage: 50 MG/DAY
  3. PREDNISONE TAB [Concomitant]
     Route: 048

REACTIONS (3)
  - IMMUNOSUPPRESSION [None]
  - INTERSTITIAL LUNG DISEASE [None]
  - OEDEMA [None]
